FAERS Safety Report 5362260-2 (Version None)
Quarter: 2007Q2

REPORT INFORMATION
  Report Type: 
  Country: None (occurrence: None)
  Receive Date: 20070619
  Receipt Date: 20070611
  Transmission Date: 20071010
  Serious: Yes (Hospitalization)
  Sender: FDA-Public Use
  Company Number: DE-ELI_LILLY_AND_COMPANY-DE200706002367

PATIENT
  Age: 59 Year
  Sex: Female

DRUGS (7)
  1. BYETTA [Suspect]
     Indication: DIABETES MELLITUS NON-INSULIN-DEPENDENT
     Dosage: 5 UNK, 2/D
     Route: 058
     Dates: start: 20070510
  2. METFORMIN HCL [Concomitant]
     Dosage: 1000 MG, 2/D
     Route: 048
  3. THYRONAJOD [Concomitant]
     Dosage: 50 UNK, UNK
     Route: 048
  4. RAMIPRIL [Concomitant]
     Dosage: 5 MG, DAILY (1/D)
     Route: 048
  5. AVANDIA [Concomitant]
     Dosage: 1 UNK, DAILY (1/D)
     Route: 048
  6. PANTOZOL [Concomitant]
  7. PROTHAZINE [Concomitant]
     Dosage: 20 UNK, AS NEEDED
     Route: 048

REACTIONS (1)
  - CEREBROVASCULAR ACCIDENT [None]
